FAERS Safety Report 5862752-3 (Version None)
Quarter: 2008Q3

REPORT INFORMATION
  Report Type: 
  Country: None (occurrence: None)
  Receive Date: 20080827
  Receipt Date: 20080827
  Transmission Date: 20090109
  Serious: No
  Sender: FDA-Public Use
  Company Number: None

PATIENT
  Age: 84 Year
  Sex: Male
  Weight: 81.6475 kg

DRUGS (1)
  1. LEVAQUIN [Suspect]
     Indication: ABDOMINAL INFECTION
     Dosage: 500 MG TABLET DAILY PO
     Route: 048
     Dates: start: 20080602, end: 20080606

REACTIONS (2)
  - PAIN [None]
  - TENDON DISORDER [None]
